FAERS Safety Report 11403545 (Version 1)
Quarter: 2015Q3

REPORT INFORMATION
  Report Type: Spontaneous
  Country: US (occurrence: None)
  Receive Date: 20150807
  Receipt Date: 20150807
  Transmission Date: 20151125
  Serious: No
  Sender: FDA-Public Use
  Company Number: 2015FE02343

PATIENT
  Age: 74 Year
  Sex: Male
  Weight: 83.9 kg

DRUGS (1)
  1. PREPOPIK [Suspect]
     Active Substance: ANHYDROUS CITRIC ACID\MAGNESIUM OXIDE\SODIUM PICOSULFATE
     Indication: BOWEL PREPARATION
     Dosage: 2 TIMES DAILY (DAY BEFORE DOSING), ORAL
     Route: 048
     Dates: start: 20150705, end: 20150705

REACTIONS (1)
  - Drug ineffective [None]
